FAERS Safety Report 9374974 (Version 1)
Quarter: 2013Q2

REPORT INFORMATION
  Report Type: Report from Study
  Country: US (occurrence: US)
  Receive Date: 20130628
  Receipt Date: 20130628
  Transmission Date: 20140414
  Serious: Yes (Hospitalization)
  Sender: FDA-Public Use
  Company Number: US-MSD-1207USA005355

PATIENT
  Age: 70 Year
  Sex: Female
  Weight: 92.63 kg

DRUGS (16)
  1. RIDAFOROLIMUS [Suspect]
     Indication: RENAL CELL CARCINOMA
     Dosage: 10 MG QD X 5 DAYS Q WK
     Route: 048
     Dates: start: 20120424, end: 20120624
  2. ZOLINZA [Suspect]
     Indication: RENAL CELL CARCINOMA
     Dosage: 100 MG, BID 3DY/WEEK
     Route: 048
     Dates: start: 20120424, end: 20120622
  3. LOVENOX [Suspect]
     Dosage: 80 MG, BID
     Route: 058
  4. ASPIRIN [Suspect]
     Dosage: 325 MG, QD
     Route: 048
  5. GABAPENTIN [Concomitant]
     Dosage: 600 MG, HS
     Route: 048
  6. SYNTHROID [Concomitant]
     Dosage: 50 MICROGRAM, QD
     Route: 048
  7. ENALAPRIL MALEATE [Concomitant]
     Dosage: 40 MG, QD
     Route: 048
  8. BYSTOLIC [Concomitant]
     Dosage: 10 MG, QD
     Route: 048
  9. NORVASC [Concomitant]
     Dosage: 10 MG, QD
     Route: 048
  10. ZOCOR [Concomitant]
     Dosage: 20 MG, QD
     Route: 048
  11. PREDNISONE [Concomitant]
     Dosage: 20 MG, BID
     Route: 048
  12. DIFLUCAN [Concomitant]
     Dosage: 100 MG, QD
     Route: 048
  13. METAMUCIL [Concomitant]
     Dosage: 2 DF, QD
     Route: 048
  14. GLUCOSAMINE [Concomitant]
     Dosage: 1500 MG, QD
     Route: 048
  15. CHONDROITIN [Concomitant]
     Dosage: 1200 MG, QD
     Route: 048
  16. VITAMINS (UNSPECIFIED) [Concomitant]

REACTIONS (7)
  - Deep vein thrombosis [Unknown]
  - Ecchymosis [Unknown]
  - Contusion [Unknown]
  - Haemoglobin decreased [Unknown]
  - Pneumonitis [Recovering/Resolving]
  - Haemorrhage subcutaneous [Unknown]
  - Muscle haemorrhage [Unknown]
